FAERS Safety Report 9263617 (Version 1)
Quarter: 2013Q2

REPORT INFORMATION
  Report Type: Spontaneous
  Country: US (occurrence: None)
  Receive Date: 20130429
  Receipt Date: 20130429
  Transmission Date: 20140414
  Serious: Yes (Disabling)
  Sender: FDA-Public Use
  Company Number: None

PATIENT
  Age: 80 Year
  Sex: Male
  Weight: 108.86 kg

DRUGS (2)
  1. LEVAQUIN [Suspect]
     Indication: INFLUENZA
     Dates: start: 20121227, end: 20121231
  2. LEVAQUIN [Suspect]
     Indication: PNEUMONIA
     Dates: start: 20121227, end: 20121231

REACTIONS (9)
  - Tendon rupture [None]
  - Myalgia [None]
  - Arthralgia [None]
  - Blood pressure increased [None]
  - Gait disturbance [None]
  - Asthenia [None]
  - Tremor [None]
  - Dyspnoea [None]
  - Coronary artery occlusion [None]
